FAERS Safety Report 23965328 (Version 2)
Quarter: 2024Q4

REPORT INFORMATION
  Report Type: Spontaneous
  Country: CA (occurrence: CA)
  Receive Date: 20240612
  Receipt Date: 20241013
  Transmission Date: 20250115
  Serious: Yes (Other)
  Sender: JOHNSON AND JOHNSON
  Company Number: CA-JNJFOC-20240604176

PATIENT
  Age: 3 Decade
  Sex: Female

DRUGS (3)
  1. CONCERTA [Suspect]
     Active Substance: METHYLPHENIDATE HYDROCHLORIDE
     Indication: Product used for unknown indication
     Route: 065
  2. ALBUTEROL [Concomitant]
     Active Substance: ALBUTEROL
  3. FLUTICASONE [Concomitant]
     Active Substance: FLUTICASONE

REACTIONS (6)
  - Respiratory tract infection [Unknown]
  - Tympanic membrane perforation [Recovering/Resolving]
  - Ear infection [Recovering/Resolving]
  - Seasonal allergy [Unknown]
  - Dry throat [Unknown]
  - Rib fracture [Unknown]

NARRATIVE: CASE EVENT DATE: 20240415
